FAERS Safety Report 25713534 (Version 1)
Quarter: 2025Q3

REPORT INFORMATION
  Report Type: Spontaneous
  Country: GB (occurrence: GB)
  Receive Date: 20250822
  Receipt Date: 20250822
  Transmission Date: 20251020
  Serious: Yes (Other)
  Sender: TEVA
  Company Number: None

PATIENT
  Age: 75 Year
  Sex: Female
  Weight: 60 kg

DRUGS (2)
  1. ALENDRONIC ACID [Suspect]
     Active Substance: ALENDRONIC ACID
     Indication: Osteoporosis
     Route: 065
  2. WARFARIN [Concomitant]
     Active Substance: WARFARIN
     Indication: Heart valve replacement

REACTIONS (4)
  - Pain in extremity [Recovering/Resolving]
  - Nausea [Recovering/Resolving]
  - Pyrexia [Recovering/Resolving]
  - Diarrhoea [Recovering/Resolving]
